FAERS Safety Report 7648719-3 (Version None)
Quarter: 2011Q3

REPORT INFORMATION
  Report Type: 
  Country: None (occurrence: None)
  Receive Date: 20110801
  Receipt Date: 20110722
  Transmission Date: 20111222
  Serious: Yes (Death, Hospitalization, Other)
  Sender: FDA-Public Use
  Company Number: PHHY2011HU63245

PATIENT
  Sex: Female

DRUGS (1)
  1. LETROZOLE [Suspect]
     Indication: BREAST CANCER

REACTIONS (6)
  - HYPOTHERMIA [None]
  - CEREBRAL ATROPHY [None]
  - BLOOD GLUCOSE INCREASED [None]
  - RESPIRATORY FAILURE [None]
  - APLASTIC ANAEMIA [None]
  - DYSPNOEA [None]
